FAERS Safety Report 21786521 (Version 1)
Quarter: 2022Q4

REPORT INFORMATION
  Report Type: Spontaneous
  Country: NL (occurrence: NL)
  Receive Date: 20221228
  Receipt Date: 20221228
  Transmission Date: 20230112
  Serious: Yes (Disabling)
  Sender: FDA-Public Use
  Company Number: NL-LRB-00856395

PATIENT
  Sex: Male
  Weight: 87 kg

DRUGS (2)
  1. ROSUVASTATIN [Suspect]
     Active Substance: ROSUVASTATIN
     Indication: Hypercholesterolaemia
     Dosage: 5 MILLIGRAM, ONCE A DAY (1 X PER DAG 1 STUK)
     Route: 065
     Dates: start: 20190918, end: 20220722
  2. ENALAPRIL [Concomitant]
     Active Substance: ENALAPRIL
     Indication: Product used for unknown indication
     Dosage: 10 MILLIGRAM (TABLET)
     Route: 065

REACTIONS (3)
  - Pain in extremity [Recovering/Resolving]
  - Neuralgia [Recovering/Resolving]
  - Myalgia [Unknown]
